FAERS Safety Report 6685135-5 (Version None)
Quarter: 2010Q2

REPORT INFORMATION
  Report Type: 
  Country: None (occurrence: None)
  Receive Date: 20100416
  Receipt Date: 20100409
  Transmission Date: 20101027
  Serious: Yes (Hospitalization)
  Sender: FDA-Public Use
  Company Number: US-GILEAD-2010-0028451

PATIENT
  Sex: Female
  Weight: 61.4 kg

DRUGS (7)
  1. LETAIRIS [Suspect]
     Indication: PULMONARY ARTERIAL HYPERTENSION
     Route: 048
     Dates: start: 20080825
  2. REMODULIN [Concomitant]
  3. CARTIA XT [Concomitant]
  4. LORTAB [Concomitant]
  5. LISINOPRIL [Concomitant]
  6. NEXIUM [Concomitant]
  7. CYCLOPHOSPH [Concomitant]

REACTIONS (1)
  - CELLULITIS [None]
